FAERS Safety Report 5889391-2 (Version None)
Quarter: 2008Q3

REPORT INFORMATION
  Report Type: 
  Country: None (occurrence: None)
  Receive Date: 20080919
  Receipt Date: 20080804
  Transmission Date: 20090109
  Serious: No
  Sender: FDA-Public Use
  Company Number: US-BAYER-200830445NA

PATIENT
  Age: 20 Year
  Sex: Female
  Weight: 56 kg

DRUGS (1)
  1. YAZ [Suspect]
     Indication: CONTRACEPTION
     Route: 048
     Dates: start: 20080601, end: 20080705

REACTIONS (4)
  - ABDOMINAL PAIN UPPER [None]
  - MENOMETRORRHAGIA [None]
  - MIGRAINE [None]
  - NAUSEA [None]
